FAERS Safety Report 16726081 (Version 1)
Quarter: 2019Q3

REPORT INFORMATION
  Report Type: Spontaneous
  Country: US (occurrence: US)
  Receive Date: 20190821
  Receipt Date: 20190821
  Transmission Date: 20191005
  Serious: Yes (Hospitalization)
  Sender: FDA-Public Use
  Company Number: US-INDIVIOR US-INDV-121162-2019

PATIENT
  Sex: Male

DRUGS (1)
  1. SUBOXONE [Suspect]
     Active Substance: BUPRENORPHINE HYDROCHLORIDE\NALOXONE HYDROCHLORIDE
     Indication: DRUG DEPENDENCE
     Dosage: 16 MILLIGRAM, QD (2 FILMS)
     Route: 065

REACTIONS (4)
  - Drug dependence [Unknown]
  - Injection site necrosis [Unknown]
  - Injection site infection [Unknown]
  - Injection site nerve damage [Unknown]

NARRATIVE: CASE EVENT DATE: 2019
